FAERS Safety Report 10006897 (Version 2)
Quarter: 2014Q1

REPORT INFORMATION
  Report Type: Spontaneous
  Country: US (occurrence: US)
  Receive Date: 20140313
  Receipt Date: 20140313
  Transmission Date: 20141002
  Serious: No
  Sender: FDA-Public Use
  Company Number: US-GILEAD-2012-0065860

PATIENT
  Sex: Female

DRUGS (4)
  1. LETAIRIS [Suspect]
     Indication: COR PULMONALE CHRONIC
     Dosage: 10 MG, QD
     Route: 048
     Dates: start: 20080324
  2. LETAIRIS [Suspect]
     Indication: PULMONARY HYPERTENSION
  3. LETAIRIS [Suspect]
     Indication: DRUG ABUSE
  4. TYVASO [Suspect]

REACTIONS (1)
  - Cough [Unknown]
